FAERS Safety Report 24790634 (Version 1)
Quarter: 2024Q4

REPORT INFORMATION
  Report Type: Spontaneous
  Country: CN (occurrence: CN)
  Receive Date: 20241230
  Receipt Date: 20241230
  Transmission Date: 20250115
  Serious: Yes (Hospitalization)
  Sender: ELI LILLY AND COMPANY
  Company Number: CN-ELI_LILLY_AND_COMPANY-CN202412016480

PATIENT
  Age: 66 Year
  Sex: Male
  Weight: 68 kg

DRUGS (3)
  1. ALIMTA [Suspect]
     Active Substance: PEMETREXED DISODIUM
     Indication: Neoplasm
     Dosage: 0.68 G, SINGLE
     Route: 041
     Dates: start: 20241023, end: 20241023
  2. TORIPALIMAB [Concomitant]
     Active Substance: TORIPALIMAB
     Indication: Neoplasm
  3. CARBOPLATIN [Concomitant]
     Active Substance: CARBOPLATIN
     Indication: Neoplasm
     Dosage: 400 MG

REACTIONS (4)
  - Haematochezia [Recovered/Resolved]
  - Pyrexia [Recovered/Resolved]
  - Platelet count decreased [Recovered/Resolved]
  - Granulocyte count decreased [Recovered/Resolved]

NARRATIVE: CASE EVENT DATE: 20241028
